FAERS Safety Report 9122035 (Version 1)
Quarter: 2012Q4

REPORT INFORMATION
  Report Type: Spontaneous
  Country: US (occurrence: None)
  Receive Date: 20121026
  Receipt Date: 20121026
  Transmission Date: 20130627
  Serious: Yes (Other)
  Sender: FDA-Public Use
  Company Number: 2012US-004376

PATIENT
  Age: 51 Year
  Sex: Female
  Weight: 59 kg

DRUGS (14)
  1. OMONTYS (PEGINESATIDE) SOLUTION FOR INJECTION [Suspect]
     Route: 042
     Dates: start: 20120904, end: 20120904
  2. VENOFER (SACCHARATED IRON OXIDE) [Concomitant]
  3. ZEMPLAR (PARICALCITOL) [Concomitant]
  4. EPOGEN (EPOETIN ALFA) [Concomitant]
  5. CLONIDINE [Concomitant]
  6. FAMOTIDINE [Concomitant]
  7. FLOVENT (FLUTICASONE PROPIONATE) [Concomitant]
  8. COMBIVENT (IPRATROPIUM BROMIDE, SALBUTAMOL SUFATE) [Concomitant]
  9. HYDRALAZINE [Concomitant]
  10. NEPHROCAPS (ASCORBIC ACID, BIOTIN, CYANOCOBALAMIN, FOLIC ACID, NICOTINAMIDE, PANTOTHENIC ACID, PYRIDOXINE HYDROCHLORIDE, RIBOFLAVIN, THIAMINE HYDROCHLORIDE) [Concomitant]
  11. MINOXIDIL [Concomitant]
  12. LABETALOL [Concomitant]
  13. LISINOPRIL [Concomitant]
  14. RENVELA (SEVELAMER CARBONATE) [Concomitant]

REACTIONS (13)
  - Hypersensitivity [None]
  - Pleural effusion [None]
  - Pharyngeal oedema [None]
  - Eyelid oedema [None]
  - Hyperhidrosis [None]
  - Ocular hyperaemia [None]
  - Dizziness [None]
  - Chest pain [None]
  - Oxygen saturation decreased [None]
  - Blood pressure increased [None]
  - Dyspnoea [None]
  - Back pain [None]
  - Headache [None]
